FAERS Safety Report 7703001-0 (Version None)
Quarter: 2011Q3

REPORT INFORMATION
  Report Type: 
  Country: None (occurrence: None)
  Receive Date: 20110823
  Receipt Date: 20110812
  Transmission Date: 20111222
  Serious: Yes (Hospitalization)
  Sender: FDA-Public Use
  Company Number: US-ELI_LILLY_AND_COMPANY-US201108004504

PATIENT
  Sex: Female

DRUGS (9)
  1. HUMALOG MIX 75/25 [Suspect]
     Dosage: 25 U, EACH MORNING
  2. HUMALOG MIX 75/25 [Suspect]
     Indication: TYPE 2 DIABETES MELLITUS
     Dosage: 30 U, EACH MORNING
     Dates: start: 20000101
  3. GLYBURIDE [Concomitant]
     Dosage: 10 MG, BID
  4. HUMALOG MIX 75/25 [Suspect]
     Dosage: 15 U, OTHER
     Dates: start: 20000101
  5. HUMALOG MIX 75/25 [Suspect]
     Dosage: 16 U, OTHER
  6. HUMALOG MIX 75/25 [Suspect]
     Dosage: 16 U, OTHER
  7. HUMALOG MIX 75/25 [Suspect]
     Dosage: 15 U, OTHER
     Dates: start: 20000101
  8. HUMALOG MIX 75/25 [Suspect]
     Dosage: 25 U, EACH MORNING
  9. HUMALOG MIX 75/25 [Suspect]
     Dosage: 30 U, EACH MORNING
     Dates: start: 20000101

REACTIONS (3)
  - BLOOD GLUCOSE DECREASED [None]
  - KNEE ARTHROPLASTY [None]
  - BLOOD GLUCOSE INCREASED [None]
